FAERS Safety Report 23976646 (Version 2)
Quarter: 2024Q3

REPORT INFORMATION
  Report Type: Spontaneous
  Country: GR (occurrence: GR)
  Receive Date: 20240614
  Receipt Date: 20240913
  Transmission Date: 20241016
  Serious: No
  Sender: PFIZER
  Company Number: GR-PFIZER INC-202400180722

PATIENT
  Age: 14 Year
  Sex: Male
  Weight: 52 kg

DRUGS (1)
  1. GENOTROPIN [Suspect]
     Active Substance: SOMATROPIN
     Indication: Dwarfism
     Dosage: 3 DAYS 2MG, 2 DAYS 1.6MG, 2 DAYS 1.4MG AND 1 DAY OFF
     Route: 058
     Dates: start: 20240103

REACTIONS (2)
  - Wrong technique in device usage process [Unknown]
  - Device leakage [Unknown]

NARRATIVE: CASE EVENT DATE: 20240101
